FAERS Safety Report 5826768-5 (Version None)
Quarter: 2008Q3

REPORT INFORMATION
  Report Type: 
  Country: None (occurrence: None)
  Receive Date: 20080728
  Receipt Date: 20080728
  Transmission Date: 20090109
  Serious: Yes (Life-Threatening)
  Sender: FDA-Public Use
  Company Number: None

PATIENT
  Age: 31 Year
  Sex: Female
  Weight: 79.3795 kg

DRUGS (1)
  1. FLEET ENEMA 118ML C.B.FLEET COMPANY, INC. 2005 [Suspect]
     Indication: BOWEL PREPARATION
     Dosage: 118ML 1 BOTTLE 24 HOURS RECTAL, 1 DOSE
     Route: 054

REACTIONS (5)
  - CAESAREAN SECTION [None]
  - CONVULSION [None]
  - DRUG EXPOSURE DURING PREGNANCY [None]
  - MIGRAINE [None]
  - MUSCLE SPASMS [None]
